FAERS Safety Report 8920146 (Version 1)
Quarter: 2012Q4

REPORT INFORMATION
  Report Type: 
  Country: FR (occurrence: FR)
  Receive Date: 20121122
  Receipt Date: 20121122
  Transmission Date: 20130627
  Serious: Yes (Hospitalization, Other)
  Sender: FDA-Public Use
  Company Number: FR-ROCHE-1147814

PATIENT
  Age: 55 Year
  Sex: Female

DRUGS (8)
  1. ZELBORAF [Suspect]
     Indication: MALIGNANT MELANOMA
     Route: 048
     Dates: start: 20120829, end: 20120907
  2. ZOMETA [Suspect]
     Indication: PRODUCT USED FOR UNKNOWN INDICATION
     Route: 042
     Dates: start: 20120830
  3. TOPALGIC [Concomitant]
  4. PARACETAMOL [Concomitant]
  5. SELOKEN [Concomitant]
  6. MOTILIUM (FRANCE) [Concomitant]
  7. ATARAX (FRANCE) [Concomitant]
     Route: 065
  8. AERIUS [Concomitant]

REACTIONS (5)
  - Erythema [Recovering/Resolving]
  - Pruritus [Recovered/Resolved]
  - Eosinophilia [Recovered/Resolved]
  - Acute generalised exanthematous pustulosis [Recovered/Resolved]
  - Face oedema [Recovered/Resolved]
